FAERS Safety Report 24862012 (Version 2)
Quarter: 2025Q1

REPORT INFORMATION
  Report Type: Spontaneous
  Country: FR (occurrence: FR)
  Receive Date: 20250120
  Receipt Date: 20250131
  Transmission Date: 20250409
  Serious: Yes (Hospitalization)
  Sender: TEVA
  Company Number: None

PATIENT
  Age: 81 Year
  Sex: Male
  Weight: 132 kg

DRUGS (17)
  1. PREGABALIN [Suspect]
     Active Substance: PREGABALIN
     Indication: Neuralgia
     Route: 048
     Dates: start: 20240925, end: 20241201
  2. DAPTOMYCIN [Concomitant]
     Active Substance: DAPTOMYCIN
     Indication: Product used for unknown indication
     Route: 042
     Dates: start: 20241201, end: 20241206
  3. ALBUTEROL [Concomitant]
     Active Substance: ALBUTEROL
     Indication: Product used for unknown indication
     Route: 065
     Dates: start: 20241125
  4. CALCIDOSE [Concomitant]
     Indication: Product used for unknown indication
     Route: 048
     Dates: start: 20241118, end: 20241212
  5. IPRATROPIUM BROMIDE [Concomitant]
     Active Substance: IPRATROPIUM BROMIDE
     Indication: Product used for unknown indication
     Route: 065
     Dates: start: 20241125
  6. HYDROXYZINE [Suspect]
     Active Substance: HYDROXYZINE HYDROCHLORIDE
     Indication: Pruritus
     Dosage: HYDROXYZINE (HYDROCHLORIDE)
     Route: 048
     Dates: start: 20241110, end: 20241201
  7. ACETAMINOPHEN [Concomitant]
     Active Substance: ACETAMINOPHEN
     Indication: Product used for unknown indication
     Route: 048
  8. LANSOPRAZOLE [Concomitant]
     Active Substance: LANSOPRAZOLE
     Indication: Product used for unknown indication
     Route: 048
     Dates: start: 20241022
  9. ALFACALCIDOL [Concomitant]
     Active Substance: ALFACALCIDOL
     Indication: Product used for unknown indication
     Route: 048
     Dates: start: 20241123, end: 20241209
  10. FUROSEMIDE [Concomitant]
     Active Substance: FUROSEMIDE
     Indication: Product used for unknown indication
     Route: 048
     Dates: start: 20241025, end: 20241201
  11. LEVOTHYROXINE [Concomitant]
     Active Substance: LEVOTHYROXINE
     Indication: Product used for unknown indication
     Dosage: SCORED TABLET
     Route: 048
  12. BISOPROLOL [Concomitant]
     Active Substance: BISOPROLOL
     Indication: Product used for unknown indication
     Dosage: BISOPROLOL (ACID FUMARATE)
     Route: 048
     Dates: start: 20241028
  13. POTASSIUM CHLORIDE [Concomitant]
     Active Substance: POTASSIUM CHLORIDE
     Indication: Product used for unknown indication
     Route: 048
     Dates: start: 20241114, end: 20241209
  14. CALCIPARINE [Concomitant]
     Active Substance: HEPARIN CALCIUM
     Indication: Product used for unknown indication
     Dosage: 5,000 IU/0.2 ML, SOLUTION FOR SUBCUTANEOUS INJECTION IN PRE-FILLED SYRINGE
     Route: 058
     Dates: start: 20241126
  15. DUPHALAC [Concomitant]
     Active Substance: LACTULOSE
     Indication: Product used for unknown indication
     Route: 048
     Dates: start: 20241201, end: 20241202
  16. BETAMETHASONE VALERATE [Concomitant]
     Active Substance: BETAMETHASONE VALERATE
     Indication: Product used for unknown indication
     Route: 003
     Dates: start: 20241114
  17. SEVELAMER HYDROCHLORIDE [Concomitant]
     Active Substance: SEVELAMER HYDROCHLORIDE
     Indication: Blood phosphorus increased
     Route: 048
     Dates: start: 20241111, end: 20241201

REACTIONS (2)
  - Confusional state [Recovered/Resolved]
  - Coma [Recovered/Resolved]

NARRATIVE: CASE EVENT DATE: 20241130
